FAERS Safety Report 15585716 (Version 3)
Quarter: 2018Q4

REPORT INFORMATION
  Report Type: Spontaneous
  Country: US (occurrence: US)
  Receive Date: 20181105
  Receipt Date: 20181218
  Transmission Date: 20190205
  Serious: Yes (Congenital Anomaly, Other)
  Sender: FDA-Public Use
  Company Number: US-PFIZER INC-2018452860

PATIENT
  Sex: Male
  Weight: 1.95 kg

DRUGS (3)
  1. MISOPROSTOL. [Suspect]
     Active Substance: MISOPROSTOL
     Indication: ABORTION INDUCED
     Dosage: 800 UG,
     Route: 064
  2. METHOTREXATE SODIUM. [Suspect]
     Active Substance: METHOTREXATE SODIUM
     Indication: ABORTION INDUCED
     Dosage: 65 MG, UNK
     Route: 064
  3. MIFEPRISTONE [Concomitant]
     Active Substance: MIFEPRISTONE
     Indication: ABORTION INDUCED
     Dosage: 200 MG, UNK
     Route: 064

REACTIONS (8)
  - Fallot^s tetralogy [Unknown]
  - Cleft lip and palate [Unknown]
  - Skull malformation [Unknown]
  - Product use in unapproved indication [Unknown]
  - Limb malformation [Unknown]
  - Genitalia external ambiguous [Unknown]
  - Maternal exposure during pregnancy [Unknown]
  - Spinal deformity [Unknown]
